FAERS Safety Report 7117979-X (Version None)
Quarter: 2010Q4

REPORT INFORMATION
  Report Type: 
  Country: None (occurrence: None)
  Receive Date: 20101123
  Receipt Date: 20101111
  Transmission Date: 20110411
  Serious: Yes (Other)
  Sender: FDA-Public Use
  Company Number: US-PFIZER INC-2010146384

PATIENT
  Sex: Male
  Weight: 76.19 kg

DRUGS (1)
  1. XALATAN [Suspect]
     Indication: GLAUCOMA
     Dosage: ONE DROP IN EACH EYE ONCE DAILY AT NIGHT
     Route: 047
     Dates: start: 20101001

REACTIONS (1)
  - VITREOUS FLOATERS [None]
